FAERS Safety Report 23300625 (Version 2)
Quarter: 2024Q1

REPORT INFORMATION
  Report Type: Spontaneous
  Country: NL (occurrence: NL)
  Receive Date: 20231215
  Receipt Date: 20240105
  Transmission Date: 20240409
  Serious: Yes (Other)
  Sender: FDA-Public Use
  Company Number: None

PATIENT
  Age: 13 Year
  Sex: Male
  Weight: 104 kg

DRUGS (6)
  1. ARIPIPRAZOLE [Suspect]
     Active Substance: ARIPIPRAZOLE
     Indication: Autism spectrum disorder
     Dosage: 1 X PER DAY 1.5 PIECES,  5 MG
     Dates: start: 20190101
  2. TRAMADOL [Suspect]
     Active Substance: TRAMADOL\TRAMADOL HYDROCHLORIDE
     Indication: Fibromyalgia
     Dosage: 3 X PER DAY 1 CAPSULE
     Dates: start: 20231101, end: 20231114
  3. METHYLPHENIDATE [Suspect]
     Active Substance: METHYLPHENIDATE
     Indication: Product used for unknown indication
     Dosage: 1 X PER DAY 1 PIECE
     Dates: start: 20230301
  4. SUMATRIPTAN [Suspect]
     Active Substance: SUMATRIPTAN
     Indication: Migraine without aura
     Dosage: AS REQUIRED, 1 TO 2 TIMES PER DAY FOR MIGRAINE, 20 MG
     Dates: start: 20180101, end: 20231114
  5. FLUOXETINE [Suspect]
     Active Substance: FLUOXETINE HYDROCHLORIDE
     Indication: Depression
     Dosage: ON AND AROUND 1 X PER DAY 1 PIECE /1X PER DAY 2 PIECES, CAPSULE 20 MG
     Dates: start: 20180101
  6. METHYLPHENIDATE [Suspect]
     Active Substance: METHYLPHENIDATE
     Indication: Product used for unknown indication
     Dosage: 1 X PER DAY 36 MG,  CONCERTA TABLET MVA 36 MG
     Dates: start: 20230101

REACTIONS (1)
  - Serotonin syndrome [Recovering/Resolving]
